FAERS Safety Report 5392193-7 (Version None)
Quarter: 2007Q3

REPORT INFORMATION
  Report Type: 
  Country: None (occurrence: None)
  Receive Date: 20070717
  Receipt Date: 20070717
  Transmission Date: 20080115
  Serious: Yes (Hospitalization)
  Sender: FDA-Public Use
  Company Number: None

PATIENT
  Age: 45 Year
  Sex: Male
  Weight: 69.1 kg

DRUGS (3)
  1. FLUDARABINE PHOSPHATE [Suspect]
     Indication: BONE MARROW TRANSPLANT
     Dosage: 60MG  INFUSED OVER 30 MI  IV
     Route: 042
     Dates: start: 20070621, end: 20070625
  2. FLUDARABINE PHOSPHATE [Suspect]
     Indication: MYELOFIBROSIS
     Dosage: 60MG  INFUSED OVER 30 MI  IV
     Route: 042
     Dates: start: 20070621, end: 20070625
  3. MELPHALAN [Suspect]
     Dosage: 290MG  INFUSED OVER 30 MI  IV
     Route: 042
     Dates: start: 20070626, end: 20070626

REACTIONS (3)
  - BRAIN NATRIURETIC PEPTIDE INCREASED [None]
  - CARDIAC FAILURE CONGESTIVE [None]
  - EJECTION FRACTION DECREASED [None]
